FAERS Safety Report 8559830-7 (Version None)
Quarter: 2012Q3

REPORT INFORMATION
  Report Type: 
  Country: None (occurrence: None)
  Receive Date: 20120802
  Receipt Date: 20120726
  Transmission Date: 20120928
  Serious: Yes (Other)
  Sender: FDA-Public Use
  Company Number: BR-PFIZER INC-2012181430

PATIENT
  Age: 23 Year
  Sex: Male
  Weight: 60 kg

DRUGS (1)
  1. MANSIL [Suspect]
     Indication: SCHISTOSOMIASIS
     Route: 048

REACTIONS (2)
  - SCHISTOSOMIASIS [None]
  - HAEMATOCHEZIA [None]
